FAERS Safety Report 9163192 (Version 1)
Quarter: 2013Q1

REPORT INFORMATION
  Report Type: Spontaneous
  Country: US (occurrence: US)
  Receive Date: 20130314
  Receipt Date: 20130314
  Transmission Date: 20140127
  Serious: Yes (Other)
  Sender: FDA-Public Use
  Company Number: US-GLAXOSMITHKLINE-A1011125A

PATIENT
  Age: 60 Year
  Sex: Female

DRUGS (7)
  1. POTIGA [Suspect]
     Indication: CONVULSION
     Dosage: 200MG THREE TIMES PER DAY
     Route: 048
     Dates: start: 201212
  2. LEVETIRACETAM [Suspect]
     Indication: CONVULSION
     Dosage: 500MG FOUR TIMES PER DAY
     Route: 048
     Dates: start: 2008
  3. VIMPAT [Concomitant]
  4. CELEXA [Concomitant]
  5. DEXILANT [Concomitant]
  6. MOBIC [Concomitant]
  7. DOXYCYCLINE [Concomitant]

REACTIONS (2)
  - Convulsion [Not Recovered/Not Resolved]
  - Vision blurred [Unknown]
